FAERS Safety Report 11211926 (Version 3)
Quarter: 2015Q4

REPORT INFORMATION
  Report Type: Spontaneous
  Country: US (occurrence: US)
  Receive Date: 20150623
  Receipt Date: 20151019
  Transmission Date: 20160304
  Serious: Yes (Hospitalization, Other)
  Sender: FDA-Public Use
  Company Number: US-BAYER-2015-362445

PATIENT
  Age: 34 Year
  Sex: Female
  Weight: 77.98 kg

DRUGS (4)
  1. MIRENA [Suspect]
     Active Substance: LEVONORGESTREL
     Indication: MENORRHAGIA
     Dosage: 20 MCG/24HR, CONT
     Route: 015
     Dates: start: 200905, end: 20140619
  2. METOPROLOL SUCCINATE. [Concomitant]
     Active Substance: METOPROLOL SUCCINATE
  3. CITALOPRAM HYDROBROMIDE. [Concomitant]
     Active Substance: CITALOPRAM HYDROBROMIDE
  4. TOPAMAX [Concomitant]
     Active Substance: TOPIRAMATE

REACTIONS (13)
  - Internal injury [None]
  - Depression [None]
  - Pelvic pain [None]
  - Injury [None]
  - Anxiety [None]
  - Abdominal pain lower [None]
  - Device difficult to use [None]
  - Emotional distress [None]
  - Genital haemorrhage [None]
  - Embedded device [None]
  - Uterine perforation [None]
  - Medical device discomfort [None]
  - Fear [None]

NARRATIVE: CASE EVENT DATE: 201406
